FAERS Safety Report 9258441 (Version 1)
Quarter: 2013Q1

REPORT INFORMATION
  Report Type: Spontaneous
  Country: US (occurrence: None)
  Receive Date: 20121212
  Receipt Date: 20121212
  Transmission Date: 20140127
  Serious: No
  Sender: FDA-Public Use
  Company Number: 1211USA000615

PATIENT
  Sex: Female

DRUGS (11)
  1. VICTRELIS [Suspect]
     Route: 048
     Dates: start: 20120929
  2. RIBAVIRIN [Suspect]
  3. PEGASYS [Suspect]
  4. METOPROLOL (METOPROLOL) [Concomitant]
  5. CITALOPRAM (CITALOPRAM) [Concomitant]
  6. ATIVAN (LORAZEPAM) [Concomitant]
  7. COMBIPATCH (ESTRADIOL, NORETHINDRONE ACETATE) [Concomitant]
  8. PANTOPRAZOLE (PANTOPRAZOLE) [Concomitant]
  9. ATIVAN (LORAZEPAM) [Concomitant]
  10. COMBIPATCH [Concomitant]
  11. PANTOPRAZOLE (PANTOPRAZOLE) [Concomitant]

REACTIONS (4)
  - Red blood cell count decreased [None]
  - Dizziness [None]
  - Decreased appetite [None]
  - Nausea [None]
